FAERS Safety Report 8558150-4 (Version None)
Quarter: 2012Q3

REPORT INFORMATION
  Report Type: 
  Country: None (occurrence: None)
  Receive Date: 20120801
  Receipt Date: 20120724
  Transmission Date: 20120928
  Serious: No
  Sender: FDA-Public Use
  Company Number: US-BAYER-2012-074959

PATIENT
  Sex: Female

DRUGS (1)
  1. BAYER HEADACHE RELIEF [Suspect]
     Indication: MIGRAINE
     Route: 048

REACTIONS (1)
  - MIGRAINE [None]
